FAERS Safety Report 25680927 (Version 2)
Quarter: 2025Q3

REPORT INFORMATION
  Report Type: Spontaneous
  Country: US (occurrence: US)
  Receive Date: 20250814
  Receipt Date: 20250901
  Transmission Date: 20251021
  Serious: Yes (Life-Threatening, Hospitalization)
  Sender: TEVA
  Company Number: US-TEVA-VS-3360153

PATIENT
  Age: 69 Year
  Sex: Male

DRUGS (6)
  1. HYDROCHLOROTHIAZIDE [Suspect]
     Active Substance: HYDROCHLOROTHIAZIDE
     Indication: Hypertension
     Route: 065
  2. TIRZEPATIDE [Suspect]
     Active Substance: TIRZEPATIDE
     Indication: Type 2 diabetes mellitus
     Route: 065
  3. FLUCONAZOLE [Suspect]
     Active Substance: FLUCONAZOLE
     Indication: Septic shock
     Route: 065
  4. LINEZOLID [Suspect]
     Active Substance: LINEZOLID
     Indication: Septic shock
     Route: 065
  5. ERTAPENEM [Suspect]
     Active Substance: ERTAPENEM
     Indication: Septic shock
     Route: 065
  6. DOXYCYCLINE [Suspect]
     Active Substance: DOXYCYCLINE
     Indication: Abscess
     Route: 065

REACTIONS (9)
  - Drug ineffective [Unknown]
  - Pulseless electrical activity [Unknown]
  - Pancreatitis [Unknown]
  - Pancreatic fistula [Unknown]
  - Small intestinal obstruction [Unknown]
  - Respiratory failure [Unknown]
  - Septic shock [Unknown]
  - Emphysema [Unknown]
  - Pleural fistula [Unknown]
